FAERS Safety Report 4636312-6 (Version None)
Quarter: 2005Q2

REPORT INFORMATION
  Report Type: 
  Country: None (occurrence: None)
  Receive Date: 20050415
  Receipt Date: 20040902
  Transmission Date: 20051028
  Serious: Yes (Death)
  Sender: FDA-Public Use
  Company Number: US-BRISTOL-MYERS SQUIBB COMPANY-12691176

PATIENT
  Age: 59 Year
  Sex: Male

DRUGS (7)
  1. TAXOL [Suspect]
     Indication: LUNG NEOPLASM MALIGNANT
     Route: 042
     Dates: start: 20040501, end: 20040801
  2. PARAPLATIN [Suspect]
     Indication: LUNG NEOPLASM MALIGNANT
     Route: 042
     Dates: start: 20040501, end: 20040801
  3. RESTORIL [Concomitant]
  4. OXYCONTIN [Concomitant]
     Route: 042
  5. NEXIUM [Concomitant]
     Route: 048
  6. NEURONTIN [Concomitant]
  7. DITROPAN XL [Concomitant]

REACTIONS (2)
  - LUNG NEOPLASM MALIGNANT [None]
  - RECTAL CANCER [None]
